FAERS Safety Report 21719685 (Version 2)
Quarter: 2022Q4

REPORT INFORMATION
  Report Type: Spontaneous
  Country: CN (occurrence: CN)
  Receive Date: 20221213
  Receipt Date: 20221221
  Transmission Date: 20230112
  Serious: Yes (Hospitalization)
  Sender: FDA-Public Use
  Company Number: CN-002147023-NVSC2022CN286506

PATIENT
  Age: 33 Year
  Sex: Male
  Weight: 44 kg

DRUGS (1)
  1. OXCARBAZEPINE [Suspect]
     Active Substance: OXCARBAZEPINE
     Indication: Epilepsy
     Dosage: 0.75 G, BID
     Route: 048
     Dates: start: 20221031, end: 20221127

REACTIONS (7)
  - Blood lactic acid increased [Unknown]
  - Hypochloraemia [Recovering/Resolving]
  - Petit mal epilepsy [Unknown]
  - Gait disturbance [Unknown]
  - Blood uric acid decreased [Unknown]
  - Hyponatraemia [Recovering/Resolving]
  - Drug ineffective [Unknown]

NARRATIVE: CASE EVENT DATE: 20221127
